FAERS Safety Report 12483406 (Version 3)
Quarter: 2016Q2

REPORT INFORMATION
  Report Type: Spontaneous
  Country: CN (occurrence: CN)
  Receive Date: 20160621
  Receipt Date: 20160627
  Transmission Date: 20160815
  Serious: No
  Sender: FDA-Public Use
  Company Number: CN-009507513-1603CHN002457

PATIENT
  Age: 63 Year
  Sex: Female
  Weight: 50.5 kg

DRUGS (17)
  1. CELECOXIB. [Concomitant]
     Active Substance: CELECOXIB
     Indication: ANALGESIC THERAPY
     Dosage: 400 MG, Q12H
     Route: 048
     Dates: start: 20160114, end: 20160120
  2. SHENG XUE NING PIAN [Concomitant]
     Indication: PROPHYLAXIS
     Dosage: UNK, BID (TOTAL DAILY DOSE 1G)
     Route: 048
     Dates: start: 20160114, end: 20160119
  3. ONDANSETRON HYDROCHLORIDE. [Concomitant]
     Active Substance: ONDANSETRON HYDROCHLORIDE
     Indication: PROPHYLAXIS OF NAUSEA AND VOMITING
     Dosage: 8 MG, QD
     Route: 041
     Dates: start: 20160118, end: 20160120
  4. ACETYLCYSTEINE. [Concomitant]
     Active Substance: ACETYLCYSTEINE
     Indication: PROPHYLAXIS
     Dosage: 0.6 G, ONCE
     Route: 048
     Dates: start: 20160118, end: 20160118
  5. QI JIAO SHENG BAI JIAO NANG [Concomitant]
     Indication: PROPHYLAXIS
     Dosage: UNK, TID
     Route: 048
     Dates: start: 20160120
  6. PANTOPRAZOLE SODIUM. [Concomitant]
     Active Substance: PANTOPRAZOLE SODIUM
     Indication: PROPHYLAXIS
     Dosage: 40 MG, QD
     Route: 048
     Dates: start: 20160120
  7. ASCORBIC ACID. [Concomitant]
     Active Substance: ASCORBIC ACID
     Indication: PROPHYLAXIS
     Dosage: 2 G, QD
     Route: 041
     Dates: start: 20160118, end: 20160119
  8. DEXAMETHASONE SODIUM PHOSPHATE. [Concomitant]
     Active Substance: DEXAMETHASONE SODIUM PHOSPHATE
     Dosage: 5 MG, ONCE
     Route: 042
     Dates: start: 20160118, end: 20160118
  9. ACETAMINOPHEN (+) OXYCODONE HYDROCHLORIDE [Concomitant]
     Active Substance: ACETAMINOPHEN\OXYCODONE HYDROCHLORIDE
     Dosage: TOTAL DAILY DOSE: 660 MG, BID
     Route: 048
     Dates: start: 20160120
  10. ACETAMINOPHEN (+) OXYCODONE HYDROCHLORIDE [Concomitant]
     Active Substance: ACETAMINOPHEN\OXYCODONE HYDROCHLORIDE
     Indication: ANALGESIC THERAPY
     Dosage: 330 MG QN
     Route: 048
     Dates: start: 20160119, end: 20160120
  11. DEXAMETHASONE SODIUM PHOSPHATE. [Concomitant]
     Active Substance: DEXAMETHASONE SODIUM PHOSPHATE
     Indication: PROPHYLAXIS OF NAUSEA AND VOMITING
     Dosage: 5 MG, QD
     Route: 041
     Dates: start: 20160118, end: 20160120
  12. EMEND [Suspect]
     Active Substance: APREPITANT
     Dosage: 80 MG, QD (DAY 2 AND DAY 3)
     Route: 048
     Dates: start: 20160119, end: 20160120
  13. CISPLATIN. [Concomitant]
     Active Substance: CISPLATIN
     Indication: CHEMOTHERAPY
     Dosage: 50 MG, FROM D1 TO D2, TREATMENT CYCLE 1/UNK
     Route: 041
     Dates: start: 20160118, end: 20160119
  14. LANSOPRAZOLE. [Concomitant]
     Active Substance: LANSOPRAZOLE
     Indication: PROPHYLAXIS
     Dosage: 30 MG, QD
     Route: 041
     Dates: start: 20160118, end: 20160120
  15. QING KAI LING [Concomitant]
     Indication: PROPHYLAXIS
     Dosage: 1.5 G, ONCE
     Route: 048
     Dates: start: 20160118, end: 20160118
  16. EMEND [Suspect]
     Active Substance: APREPITANT
     Indication: PROPHYLAXIS OF NAUSEA AND VOMITING
     Dosage: 125 MG, QD (DAY 1)
     Route: 048
     Dates: start: 20160118, end: 20160118
  17. GEMCITABINE [Concomitant]
     Active Substance: GEMCITABINE\GEMCITABINE HYDROCHLORIDE
     Indication: CHEMOTHERAPY
     Dosage: 1.4 G, D1 1/UNK
     Route: 041
     Dates: start: 20160118, end: 20160118

REACTIONS (4)
  - Blood urea increased [Recovered/Resolved]
  - Blood creatinine increased [Recovered/Resolved]
  - Gastrointestinal disorder [Recovered/Resolved]
  - Platelet count decreased [Recovered/Resolved]

NARRATIVE: CASE EVENT DATE: 20160123
